FAERS Safety Report 10967814 (Version 1)
Quarter: 2015Q1

REPORT INFORMATION
  Report Type: Report from Study
  Country: US (occurrence: US)
  Receive Date: 20150330
  Receipt Date: 20150330
  Transmission Date: 20150721
  Serious: Yes (Other)
  Sender: FDA-Public Use
  Company Number: US-ASTRAZENECA-2014BM01928

PATIENT
  Age: 7358 Day
  Sex: Female
  Weight: 88 kg

DRUGS (2)
  1. METRELEPTIN [Suspect]
     Active Substance: METRELEPTIN
     Indication: CONGENITAL GENERALISED LIPODYSTROPHY
     Route: 058
     Dates: start: 20100524, end: 20130111
  2. METRELEPTIN [Suspect]
     Active Substance: METRELEPTIN
     Indication: CONGENITAL GENERALISED LIPODYSTROPHY
     Route: 058
     Dates: start: 20100104, end: 20100406

REACTIONS (1)
  - Neutralising antibodies positive [Recovered/Resolved]

NARRATIVE: CASE EVENT DATE: 20100104
